FAERS Safety Report 9022491 (Version 2)
Quarter: 2013Q1

REPORT INFORMATION
  Report Type: Spontaneous
  Country: GB (occurrence: GB)
  Receive Date: 20130118
  Receipt Date: 20130207
  Transmission Date: 20140127
  Serious: Yes (Life-Threatening)
  Sender: FDA-Public Use
  Company Number: GB-VERTEX PHARMACEUTICALS INC.-2013-000752

PATIENT
  Sex: Male

DRUGS (2)
  1. INCIVO [Suspect]
     Indication: PRODUCT USED FOR UNKNOWN INDICATION
     Dosage: 750 MG, TID
     Route: 048
     Dates: start: 20121106, end: 20130108
  2. INCIVO [Suspect]
     Dosage: 9-10 WEEKS TREATMENT
     Route: 048
     Dates: start: 20121106, end: 20130108

REACTIONS (2)
  - Rash [Unknown]
  - Rash generalised [Unknown]
